FAERS Safety Report 18478579 (Version 1)
Quarter: 2020Q4

REPORT INFORMATION
  Report Type: Spontaneous
  Country: US (occurrence: US)
  Receive Date: 20201109
  Receipt Date: 20201109
  Transmission Date: 20210114
  Serious: Yes (Life-Threatening, Hospitalization, Other)
  Sender: FDA-Public Use
  Company Number: US-CIPLA LTD.-2020US07824

PATIENT

DRUGS (1)
  1. HYDROCHLOROTHIAZIDE/LISINOPRIL [Suspect]
     Active Substance: HYDROCHLOROTHIAZIDE\LISINOPRIL
     Indication: HYPERTENSION
     Dosage: UNK
     Route: 065

REACTIONS (5)
  - Septic shock [Unknown]
  - Respiratory failure [Unknown]
  - Klebsiella infection [Unknown]
  - Pancreatitis necrotising [Unknown]
  - Renal failure [Unknown]
